FAERS Safety Report 10033624 (Version 1)
Quarter: 2014Q1

REPORT INFORMATION
  Report Type: Spontaneous
  Country: US (occurrence: US)
  Receive Date: 20140325
  Receipt Date: 20140325
  Transmission Date: 20141002
  Serious: No
  Sender: FDA-Public Use
  Company Number: US-BIOGENIDEC-2014BI023460

PATIENT
  Age: 42 Year
  Sex: Female

DRUGS (19)
  1. TECFIDERA [Suspect]
     Indication: MULTIPLE SCLEROSIS
     Route: 048
  2. ACTOS [Concomitant]
  3. ATIVAN [Concomitant]
  4. CALAN SR [Concomitant]
  5. CRESTOR [Concomitant]
  6. GLUCOVANCE [Concomitant]
  7. JANUMET [Concomitant]
  8. LORTAB 5 [Concomitant]
  9. LYRICA [Concomitant]
  10. MAGNESIUM [Concomitant]
  11. MOTRIN [Concomitant]
  12. PREDNISONE [Concomitant]
  13. SINGULAIR [Concomitant]
  14. VITAMIN B COMPLEX [Concomitant]
  15. VITAMIN D3 [Concomitant]
  16. ZESTRIL [Concomitant]
  17. ZOLOFT [Concomitant]
  18. ZYLOPRIM [Concomitant]
  19. PREVACID [Concomitant]

REACTIONS (2)
  - Sinusitis [Unknown]
  - Diarrhoea [Unknown]
